FAERS Safety Report 4665218-1 (Version None)
Quarter: 2005Q2

REPORT INFORMATION
  Report Type: 
  Country: None (occurrence: None)
  Receive Date: 20050517
  Receipt Date: 20050504
  Transmission Date: 20051028
  Serious: Yes (Other)
  Sender: FDA-Public Use
  Company Number: USA050597260

PATIENT
  Age: 43 Year
  Sex: Female

DRUGS (2)
  1. GEMZAR [Suspect]
     Dosage: 1000 MG/M2
     Dates: start: 20050503
  2. IRINOTECAN [Concomitant]

REACTIONS (3)
  - CRACKLES LUNG [None]
  - DYSPNOEA [None]
  - WHEEZING [None]
